FAERS Safety Report 9718550 (Version 1)
Quarter: 2013Q4

REPORT INFORMATION
  Report Type: Spontaneous
  Country: US (occurrence: US)
  Receive Date: 20131125
  Receipt Date: 20131125
  Transmission Date: 20140711
  Serious: No
  Sender: FDA-Public Use
  Company Number: US-VIVUS-2013V1000785

PATIENT
  Age: 57 Year
  Sex: Female

DRUGS (1)
  1. QSYMIA [Suspect]
     Indication: PRODUCT USED FOR UNKNOWN INDICATION
     Route: 048

REACTIONS (8)
  - Cognitive disorder [Unknown]
  - Depression [Unknown]
  - Disturbance in attention [Unknown]
  - Dysgeusia [Unknown]
  - Headache [Unknown]
  - Irritability [Unknown]
  - Mood altered [Unknown]
  - Vomiting [Unknown]
